FAERS Safety Report 14531575 (Version 5)
Quarter: 2018Q2

REPORT INFORMATION
  Report Type: Report from Study
  Country: US (occurrence: US)
  Receive Date: 20180214
  Receipt Date: 20180613
  Transmission Date: 20180711
  Serious: Yes (Hospitalization)
  Sender: FDA-Public Use
  Company Number: US-ASTRAZENECA-2017SF06583

PATIENT
  Age: 74 Year
  Sex: Female
  Weight: 62.7 kg

DRUGS (68)
  1. TRAZODONE [Concomitant]
     Active Substance: TRAZODONE HYDROCHLORIDE
     Indication: INSOMNIA
     Dosage: 100 MG NIGHTLY, AS REQUIRED
     Route: 048
     Dates: start: 20170727, end: 20170801
  2. TRAZODONE [Concomitant]
     Active Substance: TRAZODONE HYDROCHLORIDE
     Indication: INSOMNIA
     Route: 048
     Dates: start: 20171011, end: 20171108
  3. ALPRAZOLAM. [Concomitant]
     Active Substance: ALPRAZOLAM
     Indication: ANXIETY
     Route: 048
     Dates: start: 20140529
  4. TRAMADOL. [Concomitant]
     Active Substance: TRAMADOL
     Indication: PAIN
     Dosage: 50 MG 8 HR PER NEEDED AS REQUIRED
     Route: 048
     Dates: start: 20170727
  5. TRAMADOL. [Concomitant]
     Active Substance: TRAMADOL
     Indication: HEADACHE
     Dosage: 50 MG EVERY 6 HOURS PRN AS REQUIRED
     Route: 048
     Dates: start: 20170728, end: 20170801
  6. TRAMADOL. [Concomitant]
     Active Substance: TRAMADOL
     Indication: HEADACHE
     Dosage: 50 MG TWO TIMES A DAY PRN AS REQUIRED
     Route: 048
     Dates: start: 20170802, end: 20170822
  7. TRAMADOL. [Concomitant]
     Active Substance: TRAMADOL
     Indication: HEADACHE
     Dosage: 50.0MG AS REQUIRED
     Route: 048
     Dates: start: 20180312, end: 20180312
  8. ONDANSETRON [Concomitant]
     Active Substance: ONDANSETRON
     Indication: VOMITING
     Dosage: 8 MG EVERY 8 HOURS PRN
     Route: 042
     Dates: start: 20170301, end: 20170303
  9. ONDANSETRON [Concomitant]
     Active Substance: ONDANSETRON
     Indication: VOMITING
     Dosage: 4 MG 8 HOURS PRN ONCE/SINGLE ADMINISTRATION
     Route: 048
     Dates: start: 20170802, end: 20170808
  10. ONDANSETRON [Concomitant]
     Active Substance: ONDANSETRON
     Indication: VOMITING
     Dosage: 8 MG 8 HOURS PRN ONCE/SINGLE ADMINISTRATION
     Route: 048
     Dates: start: 20170809
  11. LEVEMIR [Concomitant]
     Active Substance: INSULIN DETEMIR
     Indication: DIABETES MELLITUS
     Route: 058
     Dates: start: 20140529
  12. ACALABRUTINIB. [Suspect]
     Active Substance: ACALABRUTINIB
     Indication: MANTLE CELL LYMPHOMA
     Route: 048
     Dates: start: 20171013, end: 20171013
  13. METFORMIN [Concomitant]
     Active Substance: METFORMIN HYDROCHLORIDE
     Indication: HYPERGLYCAEMIA
     Route: 048
     Dates: start: 20140529, end: 20170228
  14. FOLIC ACID. [Concomitant]
     Active Substance: FOLIC ACID
     Indication: SUPPLEMENTATION THERAPY
     Route: 048
     Dates: start: 20070718
  15. TRAMADOL. [Concomitant]
     Active Substance: TRAMADOL
     Indication: PAIN IN EXTREMITY
     Dosage: 50 MG EVERY 6 HOURS PRN AS REQUIRED
     Route: 048
     Dates: start: 20170728, end: 20170801
  16. TRAMADOL. [Concomitant]
     Active Substance: TRAMADOL
     Indication: COLITIS
     Dosage: 50 MG TWO TIMES A DAY PRN AS REQUIRED
     Route: 048
     Dates: start: 20170802, end: 20170822
  17. TRAMADOL. [Concomitant]
     Active Substance: TRAMADOL
     Indication: COLITIS
     Dosage: 50.0MG AS REQUIRED
     Route: 048
     Dates: start: 20180312, end: 20180312
  18. LEVOTHYROXINE. [Concomitant]
     Active Substance: LEVOTHYROXINE
     Indication: HYPOTHYROIDISM
     Route: 048
     Dates: start: 20071002
  19. COLACE [Concomitant]
     Active Substance: DOCUSATE SODIUM
     Indication: CONSTIPATION PROPHYLAXIS
     Route: 048
     Dates: start: 20170109
  20. SENOKOT-S [Concomitant]
     Active Substance: DOCUSATE SODIUM\SENNOSIDES
     Indication: CONSTIPATION PROPHYLAXIS
     Dosage: 8.6 - 50 MG TWICE PER DAY
     Route: 048
     Dates: start: 20170107
  21. CEFEPIME [Concomitant]
     Active Substance: CEFEPIME HYDROCHLORIDE
     Indication: PYREXIA
     Route: 042
     Dates: start: 20170913
  22. HYDROCODONE [Concomitant]
     Active Substance: HYDROCODONE
     Indication: PAIN IN EXTREMITY
     Dosage: 300.0MG AS REQUIRED
     Route: 048
     Dates: start: 20151211
  23. TRAMADOL. [Concomitant]
     Active Substance: TRAMADOL
     Indication: HEADACHE
     Dosage: 1.0DF AS REQUIRED
     Route: 048
     Dates: start: 20151231, end: 20160306
  24. TRAMADOL. [Concomitant]
     Active Substance: TRAMADOL
     Indication: COLITIS
     Dosage: 1.0DF AS REQUIRED
     Route: 048
     Dates: start: 20151231, end: 20160306
  25. ONDANSETRON [Concomitant]
     Active Substance: ONDANSETRON
     Indication: NAUSEA
     Dosage: 4 MG 8 HOURS PRN ONCE/SINGLE ADMINISTRATION
     Route: 048
     Dates: start: 20170802, end: 20170808
  26. ONGLYZA [Concomitant]
     Active Substance: SAXAGLIPTIN HYDROCHLORIDE
     Indication: DIABETES MELLITUS
     Route: 048
     Dates: start: 20150515
  27. VICKS DAYQUIL [Concomitant]
     Active Substance: DEXTROMETHORPHAN HYDROBROMIDE\GUAIFENESIN
     Indication: COUGH
     Dosage: 2.0DF AS REQUIRED
     Route: 048
     Dates: start: 20151213
  28. ACALABRUTINIB. [Suspect]
     Active Substance: ACALABRUTINIB
     Indication: MANTLE CELL LYMPHOMA
     Route: 048
     Dates: start: 20151210, end: 20171012
  29. ACALABRUTINIB. [Suspect]
     Active Substance: ACALABRUTINIB
     Indication: MANTLE CELL LYMPHOMA
     Route: 048
     Dates: start: 20180206, end: 20180309
  30. METFORMIN [Concomitant]
     Active Substance: METFORMIN HYDROCHLORIDE
     Indication: HYPERGLYCAEMIA
     Route: 048
     Dates: start: 20170304
  31. TRAZODONE [Concomitant]
     Active Substance: TRAZODONE HYDROCHLORIDE
     Indication: INSOMNIA
     Dosage: 100 MG NIGHTLY, AS REQUIRED
     Route: 048
     Dates: start: 20170809
  32. TRAMADOL. [Concomitant]
     Active Substance: TRAMADOL
     Indication: PAIN IN EXTREMITY
     Dosage: 1.0DF AS REQUIRED
     Route: 048
     Dates: start: 20151231, end: 20160306
  33. TRAMADOL. [Concomitant]
     Active Substance: TRAMADOL
     Indication: PAIN IN EXTREMITY
     Dosage: 50 MG 8 HR PER NEEDED AS REQUIRED
     Route: 048
     Dates: start: 20170727
  34. TRAMADOL. [Concomitant]
     Active Substance: TRAMADOL
     Indication: COLITIS
     Dosage: 50 MG 8 HR PER NEEDED AS REQUIRED
     Route: 048
     Dates: start: 20170727
  35. TRAMADOL. [Concomitant]
     Active Substance: TRAMADOL
     Indication: PAIN
     Dosage: 50.0MG AS REQUIRED
     Route: 048
     Dates: start: 20180312, end: 20180312
  36. ONDANSETRON [Concomitant]
     Active Substance: ONDANSETRON
     Indication: NAUSEA
     Dosage: 8 MG EVERY 6 HOURS PRN ONCE/SINGLE ADMINISTRATION
     Route: 042
     Dates: start: 20180201, end: 20180201
  37. HALOPERIDOL. [Concomitant]
     Active Substance: HALOPERIDOL
     Indication: AGITATION
     Dosage: 1.0MG ONCE/SINGLE ADMINISTRATION
     Route: 042
     Dates: start: 20170801, end: 20170802
  38. DULOXETINE. [Concomitant]
     Active Substance: DULOXETINE
     Indication: ANXIETY
     Route: 048
     Dates: start: 20140529
  39. TRAMADOL. [Concomitant]
     Active Substance: TRAMADOL
     Indication: HEADACHE
     Dosage: 50 MG 8 HR PER NEEDED AS REQUIRED
     Route: 048
     Dates: start: 20170727
  40. TRAMADOL. [Concomitant]
     Active Substance: TRAMADOL
     Indication: COLITIS
     Dosage: 50 MG EVERY 6 HOURS PRN AS REQUIRED
     Route: 048
     Dates: start: 20170728, end: 20170801
  41. TRAMADOL. [Concomitant]
     Active Substance: TRAMADOL
     Indication: PAIN IN EXTREMITY
     Dosage: 50 MG TWO TIMES A DAY PRN AS REQUIRED
     Route: 048
     Dates: start: 20170802, end: 20170822
  42. ONDANSETRON [Concomitant]
     Active Substance: ONDANSETRON
     Indication: NAUSEA
     Dosage: 4.0MG ONCE/SINGLE ADMINISTRATION
     Route: 048
     Dates: start: 20170621, end: 20170727
  43. ONDANSETRON [Concomitant]
     Active Substance: ONDANSETRON
     Indication: NAUSEA
     Dosage: 8 MG 8 HOURS PRN ONCE/SINGLE ADMINISTRATION
     Route: 042
     Dates: start: 20170727, end: 20170801
  44. ONDANSETRON [Concomitant]
     Active Substance: ONDANSETRON
     Indication: NAUSEA
     Dosage: 8.0MG ONCE/SINGLE ADMINISTRATION
     Route: 042
     Dates: start: 20170913, end: 20171020
  45. ONDANSETRON [Concomitant]
     Active Substance: ONDANSETRON
     Indication: VOMITING
     Dosage: 8 MG EVERY 6 HOURS PRN ONCE/SINGLE ADMINISTRATION
     Route: 042
     Dates: start: 20180201, end: 20180201
  46. ONDANSETRON [Concomitant]
     Active Substance: ONDANSETRON
     Indication: VOMITING
     Dosage: 8 MG EVERY 8 HOURS PRN
     Route: 042
     Dates: start: 20170106, end: 20170228
  47. HALOPERIDOL. [Concomitant]
     Active Substance: HALOPERIDOL
     Indication: AGITATION
     Dosage: 1.0MG AS REQUIRED
     Route: 048
     Dates: start: 20170802
  48. DULOXETINE. [Concomitant]
     Active Substance: DULOXETINE
     Indication: DEPRESSION
     Route: 048
     Dates: start: 20140529
  49. TRAMADOL. [Concomitant]
     Active Substance: TRAMADOL
     Indication: PAIN
     Dosage: 1.0DF AS REQUIRED
     Route: 048
     Dates: start: 20151231, end: 20160306
  50. TRAMADOL. [Concomitant]
     Active Substance: TRAMADOL
     Indication: PAIN
     Dosage: 50 MG EVERY 6 HOURS PRN AS REQUIRED
     Route: 048
     Dates: start: 20170728, end: 20170801
  51. TRAMADOL. [Concomitant]
     Active Substance: TRAMADOL
     Indication: PAIN IN EXTREMITY
     Dosage: 50.0MG AS REQUIRED
     Route: 048
     Dates: start: 20180312, end: 20180312
  52. ONDANSETRON [Concomitant]
     Active Substance: ONDANSETRON
     Indication: NAUSEA
     Dosage: 8 MG EVERY 8 HOURS PRN
     Route: 042
     Dates: start: 20170106, end: 20170228
  53. ONDANSETRON [Concomitant]
     Active Substance: ONDANSETRON
     Indication: VOMITING
     Dosage: 4.0MG ONCE/SINGLE ADMINISTRATION
     Route: 048
     Dates: start: 20170621, end: 20170727
  54. ONDANSETRON [Concomitant]
     Active Substance: ONDANSETRON
     Indication: VOMITING
     Dosage: 8 MG 8 HOURS PRN ONCE/SINGLE ADMINISTRATION
     Route: 042
     Dates: start: 20170727, end: 20170801
  55. ONDANSETRON [Concomitant]
     Active Substance: ONDANSETRON
     Indication: NAUSEA
     Dosage: 8 MG 8 HOURS PRN ONCE/SINGLE ADMINISTRATION
     Route: 048
     Dates: start: 20170809
  56. ONDANSETRON [Concomitant]
     Active Substance: ONDANSETRON
     Indication: VOMITING
     Dosage: 8.0MG ONCE/SINGLE ADMINISTRATION
     Route: 042
     Dates: start: 20170913, end: 20171020
  57. ZOLPIDEM TARTRATE. [Concomitant]
     Active Substance: ZOLPIDEM TARTRATE
     Indication: INSOMNIA
     Route: 048
     Dates: start: 20140515
  58. MORPHINE [Concomitant]
     Active Substance: MORPHINE
     Indication: MUSCULOSKELETAL PAIN
     Dosage: 1 MG EVERY 3 HRS PRN
     Route: 042
     Dates: start: 20170109
  59. AUGMENTIN [Concomitant]
     Active Substance: AMOXICILLIN\CLAVULANATE POTASSIUM
     Indication: URINARY TRACT INFECTION
     Route: 048
     Dates: start: 20161206
  60. ACALABRUTINIB. [Suspect]
     Active Substance: ACALABRUTINIB
     Indication: MANTLE CELL LYMPHOMA
     Route: 048
     Dates: start: 20171106, end: 20180131
  61. FARXIGA [Concomitant]
     Active Substance: DAPAGLIFLOZIN PROPANEDIOL
     Indication: DIABETES MELLITUS
     Route: 048
     Dates: start: 20150506
  62. RISPERIDONE. [Concomitant]
     Active Substance: RISPERIDONE
     Indication: AGITATION
     Route: 048
     Dates: start: 20140515
  63. TRAMADOL. [Concomitant]
     Active Substance: TRAMADOL
     Indication: PAIN
     Dosage: 50 MG TWO TIMES A DAY PRN AS REQUIRED
     Route: 048
     Dates: start: 20170802, end: 20170822
  64. ONDANSETRON [Concomitant]
     Active Substance: ONDANSETRON
     Indication: NAUSEA
     Dosage: 8 MG EVERY 8 HOURS PRN
     Route: 042
     Dates: start: 20170301, end: 20170303
  65. GABAPENTIN. [Concomitant]
     Active Substance: GABAPENTIN
     Indication: NEUROPATHY PERIPHERAL
     Route: 048
     Dates: start: 20070718
  66. FLAGYL [Concomitant]
     Active Substance: METRONIDAZOLE\METRONIDAZOLE HYDROCHLORIDE
     Indication: DIARRHOEA
     Dosage: 500 MG, THREE (3) TIMES A DAY FOR 14 DAYS
     Route: 048
     Dates: start: 20170302
  67. MYCOSTATIN [Concomitant]
     Active Substance: NYSTATIN
     Indication: INTERTRIGO
     Dosage: 100.000 UNITS/G POWDER THREE TIMES PER DAY
     Route: 061
     Dates: start: 20170302
  68. VICKS NYQUIL [Concomitant]
     Active Substance: ACETAMINOPHEN\DEXTROMETHORPHAN HYDROBROMIDE\DOXYLAMINE SUCCINATE
     Indication: COUGH
     Dosage: 325.0MG AS REQUIRED
     Route: 048
     Dates: start: 20151213

REACTIONS (3)
  - Clostridium difficile infection [Recovered/Resolved]
  - Urosepsis [Recovered/Resolved]
  - Escherichia infection [Recovered/Resolved]

NARRATIVE: CASE EVENT DATE: 20171013
